FAERS Safety Report 19944373 (Version 2)
Quarter: 2021Q4

REPORT INFORMATION
  Report Type: Spontaneous
  Country: US (occurrence: US)
  Receive Date: 20211012
  Receipt Date: 20211109
  Transmission Date: 20220304
  Serious: Yes (Other)
  Sender: FDA-Public Use
  Company Number: US-BAYER-2021A224157

PATIENT
  Age: 44 Year
  Sex: Male

DRUGS (5)
  1. LOTRIMIN AF ANTIFUNGAL [Suspect]
     Active Substance: MICONAZOLE NITRATE
     Dosage: UNK
     Route: 061
     Dates: start: 202102
  2. LOTRIMIN AF ANTIFUNGAL [Suspect]
     Active Substance: MICONAZOLE NITRATE
  3. METFORMIN [Concomitant]
     Active Substance: METFORMIN HYDROCHLORIDE
  4. ALOCRIL [Concomitant]
     Active Substance: NEDOCROMIL SODIUM
  5. ATORVASTATIN CALCIUM\EZETIMIBE [Concomitant]
     Active Substance: ATORVASTATIN CALCIUM\EZETIMIBE

REACTIONS (1)
  - Rectal haemorrhage [Not Recovered/Not Resolved]

NARRATIVE: CASE EVENT DATE: 20210401
